FAERS Safety Report 20135920 (Version 1)
Quarter: 2021Q4

REPORT INFORMATION
  Report Type: Report from Study
  Country: BR (occurrence: BR)
  Receive Date: 20211201
  Receipt Date: 20211201
  Transmission Date: 20220303
  Serious: Yes (Other)
  Sender: FDA-Public Use
  Company Number: BR-NOVARTISPH-NVSC2021BR268469

PATIENT
  Age: 28 Year
  Sex: Female

DRUGS (12)
  1. ZOMETA [Suspect]
     Active Substance: ZOLEDRONIC ACID
     Indication: Metastases to bone
     Dosage: 4 MG (ENDOVENOSE) (EVERY 3 WEEKS)
     Route: 065
  2. ZOMETA [Suspect]
     Active Substance: ZOLEDRONIC ACID
     Dosage: 4 MG (ENDOVENOSE) (EVERY 3 WEEKS)
     Route: 065
     Dates: start: 202103
  3. ANASTROZOLE [Suspect]
     Active Substance: ANASTROZOLE
     Indication: Product used for unknown indication
     Dosage: 1 MG, QD (CONTINUOUS USE)
     Route: 048
     Dates: start: 20200508
  4. ANASTROZOLE [Suspect]
     Active Substance: ANASTROZOLE
     Dosage: 1 MG, QD (CONTINUOUS USE)
     Route: 048
     Dates: start: 202103
  5. RIBOCICLIB [Suspect]
     Active Substance: RIBOCICLIB
     Indication: Product used for unknown indication
     Dosage: 200 MG (3 TABLETS EVERY 21 DAYS AND A 7-DAY BREAK)
     Route: 048
     Dates: start: 20200508
  6. RIBOCICLIB [Suspect]
     Active Substance: RIBOCICLIB
     Dosage: 200 MG (3 TABLETS EVERY 21 DAYS AND A 7-DAY BREAK)
     Route: 048
     Dates: start: 202103
  7. DOXORUBICIN [Suspect]
     Active Substance: DOXORUBICIN
     Indication: Invasive breast carcinoma
     Dosage: UNK UNK, Q3W FOR 4 CYCLES
     Route: 065
     Dates: start: 20200207, end: 20200424
  8. TRAMADOL [Suspect]
     Active Substance: TRAMADOL
     Indication: Pain
     Dosage: UNK
     Route: 065
     Dates: start: 20200508
  9. CYCLOPHOSPHAMIDE [Concomitant]
     Active Substance: CYCLOPHOSPHAMIDE
     Indication: Invasive breast carcinoma
     Dosage: UNK, Q3W FOR 4 CYCLES
     Route: 065
     Dates: start: 20200207, end: 20200424
  10. ZOLADEX [Concomitant]
     Active Substance: GOSERELIN ACETATE
     Indication: Product used for unknown indication
     Dosage: 3.6 MG, QMO
     Route: 058
     Dates: start: 20200508
  11. ZOLADEX [Concomitant]
     Active Substance: GOSERELIN ACETATE
     Dosage: UNK
     Route: 065
     Dates: start: 202103
  12. DIPYRONE [Concomitant]
     Active Substance: DIPYRONE
     Indication: Pain
     Dosage: 1 MG, Q6H
     Route: 065
     Dates: start: 20200508

REACTIONS (8)
  - Suicide attempt [Unknown]
  - Gastrointestinal toxicity [Unknown]
  - Dehydration [Recovering/Resolving]
  - Nausea [Recovering/Resolving]
  - Vomiting [Unknown]
  - Pelvic pain [Unknown]
  - Weight decreased [Unknown]
  - Treatment failure [Unknown]
